FAERS Safety Report 19447819 (Version 1)
Quarter: 2021Q2

REPORT INFORMATION
  Report Type: Spontaneous
  Country: US (occurrence: US)
  Receive Date: 20210621
  Receipt Date: 20210621
  Transmission Date: 20210717
  Serious: Yes (Hospitalization)
  Sender: FDA-Public Use
  Company Number: None

PATIENT
  Age: 16 Year
  Sex: Male

DRUGS (2)
  1. VITAMIN B [Concomitant]
     Active Substance: VITAMIN B
  2. NORDITROPIN [Suspect]
     Active Substance: SOMATROPIN
     Indication: HYPOPITUITARISM
     Route: 058
     Dates: start: 20200124

REACTIONS (2)
  - Therapy interrupted [None]
  - Vaccination complication [None]

NARRATIVE: CASE EVENT DATE: 20210614
